FAERS Safety Report 6546659-4 (Version None)
Quarter: 2010Q1

REPORT INFORMATION
  Report Type: 
  Country: None (occurrence: None)
  Receive Date: 20100122
  Receipt Date: 20100115
  Transmission Date: 20100710
  Serious: Yes (Other)
  Sender: FDA-Public Use
  Company Number: US-MYLANLABS-2010S1000653

PATIENT
  Age: 67 Year
  Sex: Female
  Weight: 53.6 kg

DRUGS (3)
  1. LEVETIRACETAM [Suspect]
     Indication: CONVULSION
     Route: 048
     Dates: end: 20090601
  2. KEPPRA [Suspect]
     Indication: CONVULSION
     Route: 048
     Dates: start: 20090601
  3. MULTI-VITAMINS [Concomitant]

REACTIONS (10)
  - ABNORMAL LOSS OF WEIGHT [None]
  - ANXIETY [None]
  - CONVULSION [None]
  - DRUG INEFFECTIVE FOR UNAPPROVED INDICATION [None]
  - EXPOSURE TO TOXIC AGENT [None]
  - INSOMNIA [None]
  - NAUSEA [None]
  - PAROSMIA [None]
  - PERSONALITY CHANGE [None]
  - POLLAKIURIA [None]
